FAERS Safety Report 10196828 (Version 1)
Quarter: 2014Q2

REPORT INFORMATION
  Report Type: Spontaneous
  Country: IT (occurrence: None)
  Receive Date: 20140522
  Receipt Date: 20140522
  Transmission Date: 20141212
  Serious: Yes (Other)
  Sender: FDA-Public Use
  Company Number: AUR-APL-2014-05969

PATIENT
  Sex: Female

DRUGS (1)
  1. OLANZAPINE (OLANZAPINE) [Suspect]
     Indication: PRODUCT USED FOR UNKNOWN INDICATION

REACTIONS (4)
  - Incontinence [None]
  - Sedation [None]
  - Somnolence [None]
  - Hyporesponsive to stimuli [None]
